FAERS Safety Report 24449795 (Version 3)
Quarter: 2025Q4

REPORT INFORMATION
  Report Type: Other
  Country: EU (occurrence: EU)
  Receive Date: 20241017
  Receipt Date: 20251014
  Transmission Date: 20260118
  Serious: Yes (Hospitalization, Other)
  Sender: MACLEODS
  Company Number: None

PATIENT

DRUGS (18)
  1. LEVOFLOXACIN [Suspect]
     Active Substance: LEVOFLOXACIN
     Indication: Staphylococcal infection
     Route: 048
  2. LEVOFLOXACIN [Suspect]
     Active Substance: LEVOFLOXACIN
     Indication: Pseudomonas infection
     Route: 042
  3. LEVOFLOXACIN [Suspect]
     Active Substance: LEVOFLOXACIN
     Indication: Osteomyelitis
     Route: 042
  4. LEVOFLOXACIN [Suspect]
     Active Substance: LEVOFLOXACIN
     Indication: Arthritis infective
  5. LEVOFLOXACIN [Suspect]
     Active Substance: LEVOFLOXACIN
     Indication: Arthritis infective
     Route: 042
  6. LEVOFLOXACIN [Suspect]
     Active Substance: LEVOFLOXACIN
     Route: 042
  7. LEVOFLOXACIN [Suspect]
     Active Substance: LEVOFLOXACIN
     Route: 042
  8. LEVOFLOXACIN [Suspect]
     Active Substance: LEVOFLOXACIN
     Route: 042
  9. LEVOFLOXACIN [Suspect]
     Active Substance: LEVOFLOXACIN
     Route: 042
  10. LEVOFLOXACIN [Suspect]
     Active Substance: LEVOFLOXACIN
     Route: 042
  11. LEVOFLOXACIN [Suspect]
     Active Substance: LEVOFLOXACIN
     Route: 042
  12. LEVOFLOXACIN [Suspect]
     Active Substance: LEVOFLOXACIN
     Route: 048
  13. LEVOFLOXACIN [Suspect]
     Active Substance: LEVOFLOXACIN
     Route: 042
  14. AMIKACIN [Suspect]
     Active Substance: AMIKACIN
     Indication: Pseudomonas infection
     Route: 065
  15. AMIKACIN [Suspect]
     Active Substance: AMIKACIN
     Indication: Staphylococcal sepsis
  16. CEFTAZIDIME [Suspect]
     Active Substance: CEFTAZIDIME
     Indication: Staphylococcal sepsis
     Route: 065
  17. CEFTAZIDIME [Suspect]
     Active Substance: CEFTAZIDIME
     Indication: Pseudomonas infection
     Route: 065
  18. CEFAZOLIN [Concomitant]
     Active Substance: CEFAZOLIN
     Indication: Product used for unknown indication
     Route: 065

REACTIONS (3)
  - Toxic skin eruption [Recovering/Resolving]
  - Condition aggravated [Recovering/Resolving]
  - Drug ineffective [Recovered/Resolved]
